FAERS Safety Report 6585058-6 (Version None)
Quarter: 2010Q1

REPORT INFORMATION
  Report Type: 
  Country: None (occurrence: None)
  Receive Date: 20100217
  Receipt Date: 20100209
  Transmission Date: 20100710
  Serious: Yes (Death)
  Sender: FDA-Public Use
  Company Number: US-ROCHE-680524

PATIENT
  Sex: Male
  Weight: 77.2 kg

DRUGS (6)
  1. PEG-INTERFERON A-2A (RO 25-8310) [Suspect]
     Indication: HEPATITIS C
     Route: 058
     Dates: start: 20090227, end: 20090819
  2. RIBAVIRIN [Suspect]
     Indication: HEPATITIS C
     Route: 065
     Dates: start: 20090227, end: 20090820
  3. XANAX [Concomitant]
     Indication: ANXIETY
     Route: 048
     Dates: start: 20080901, end: 20090822
  4. ENALAPRIL MALEATE [Concomitant]
     Indication: HYPERTENSION
     Route: 048
     Dates: start: 20080101, end: 20090822
  5. LORTAB [Concomitant]
     Dosage: DOSE REPORTED AS 7.5/500
     Route: 048
     Dates: start: 20090228, end: 20090822
  6. LEXAPRO [Concomitant]
     Indication: IRRITABILITY
     Route: 048
     Dates: start: 20090227, end: 20090822

REACTIONS (1)
  - ACCIDENT [None]
